FAERS Safety Report 7867825-1 (Version None)
Quarter: 2011Q4

REPORT INFORMATION
  Report Type: 
  Country: None (occurrence: None)
  Receive Date: 20111028
  Receipt Date: 20111025
  Transmission Date: 20120403
  Serious: No
  Sender: FDA-Public Use
  Company Number: US-BAYER-2011-104560

PATIENT
  Sex: Male
  Weight: 58.957 kg

DRUGS (1)
  1. ULTRAVIST 150 [Suspect]
     Indication: COMPUTERISED TOMOGRAM
     Dosage: 80 MG, UNK
     Route: 042
     Dates: start: 20111025

REACTIONS (4)
  - URTICARIA [None]
  - ERYTHEMA [None]
  - PRURITUS GENERALISED [None]
  - SWELLING FACE [None]
